FAERS Safety Report 16458514 (Version 1)
Quarter: 2019Q2

REPORT INFORMATION
  Report Type: Spontaneous
  Country: US (occurrence: US)
  Receive Date: 20190620
  Receipt Date: 20190620
  Transmission Date: 20190711
  Serious: No
  Sender: FDA-Public Use
  Company Number: US-THERAPEUTICSMD-2019TMD00409

PATIENT
  Age: 61 Year
  Sex: Female
  Weight: 99.77 kg

DRUGS (5)
  1. IMVEXXY [Suspect]
     Active Substance: ESTRADIOL
     Dosage: 10 ?G, 2X/WEEK AT NIGHTTIME
     Route: 067
     Dates: start: 201903, end: 20190314
  2. LISINOPRIL. [Concomitant]
     Active Substance: LISINOPRIL
     Dosage: UNK
     Dates: start: 2009
  3. ATORVASTATIN [Concomitant]
     Active Substance: ATORVASTATIN
  4. IMVEXXY [Suspect]
     Active Substance: ESTRADIOL
     Indication: VULVOVAGINAL DRYNESS
     Dosage: 10 ?G, 1X/DAY AT NIGHTTIME
     Route: 067
     Dates: start: 201902, end: 201903
  5. TRAVATAN [Concomitant]
     Active Substance: TRAVOPROST
     Dosage: UNK

REACTIONS (15)
  - Cardiac murmur [Recovered/Resolved]
  - Anxiety [Recovered/Resolved]
  - Influenza [Unknown]
  - Hypertension [Not Recovered/Not Resolved]
  - Off label use [Recovered/Resolved]
  - Breast tenderness [Recovered/Resolved]
  - Muscle spasms [Recovered/Resolved]
  - Pyrexia [Recovered/Resolved]
  - Chills [Recovered/Resolved]
  - Night sweats [Recovered/Resolved]
  - Rash pruritic [Recovering/Resolving]
  - Hypoaesthesia [Recovered/Resolved]
  - Dry skin [Not Recovered/Not Resolved]
  - Fatigue [Recovered/Resolved]
  - Skin discolouration [Not Recovered/Not Resolved]

NARRATIVE: CASE EVENT DATE: 2019
